FAERS Safety Report 23258219 (Version 1)
Quarter: 2023Q4

REPORT INFORMATION
  Report Type: Other
  Country: ZA (occurrence: None)
  Receive Date: 20231204
  Receipt Date: 20231204
  Transmission Date: 20240110
  Serious: No
  Sender: FDA-Public Use
  Company Number: ZA-ROCHE-3466714

PATIENT
  Age: 36 Year
  Sex: Female

DRUGS (1)
  1. OCREVUS [Suspect]
     Active Substance: OCRELIZUMAB
     Indication: Primary progressive multiple sclerosis
     Dosage: 600MG EVERY 6 MONTHS
     Route: 041
     Dates: start: 20220113

REACTIONS (2)
  - Multiple sclerosis [Unknown]
  - Demyelination [Unknown]
